FAERS Safety Report 9338048 (Version 1)
Quarter: 2013Q2

REPORT INFORMATION
  Report Type: Spontaneous
  Country: US (occurrence: US)
  Receive Date: 20130610
  Receipt Date: 20130610
  Transmission Date: 20140414
  Serious: No
  Sender: FDA-Public Use
  Company Number: US-009507513-1306USA001104

PATIENT
  Age: 34 Year
  Sex: Male

DRUGS (1)
  1. CLARINEX-D-12 [Suspect]
     Indication: SEASONAL ALLERGY
     Dosage: ONE TABLET, TWICE DAILY, STRENGTH REPORTED AS 2.5/120 MG
     Route: 048
     Dates: start: 201302

REACTIONS (2)
  - Drug ineffective [Unknown]
  - No adverse event [Unknown]
